FAERS Safety Report 24685839 (Version 2)
Quarter: 2025Q1

REPORT INFORMATION
  Report Type: Spontaneous
  Country: US (occurrence: US)
  Receive Date: 20241202
  Receipt Date: 20250311
  Transmission Date: 20250409
  Serious: No
  Sender: BLUEBIRD BIO
  Company Number: US-BLUEBIRD BIO-US-BBB-24-00048

PATIENT
  Sex: Male

DRUGS (2)
  1. ZYNTEGLO [Suspect]
     Active Substance: BETIBEGLOGENE AUTOTEMCEL
     Indication: Thalassaemia beta
     Route: 042
  2. MYLERAN [Suspect]
     Active Substance: BUSULFAN
     Indication: Bone marrow conditioning regimen
     Route: 042

REACTIONS (1)
  - Mucosal inflammation [Unknown]
